FAERS Safety Report 23264385 (Version 1)
Quarter: 2023Q4

REPORT INFORMATION
  Report Type: Other
  Country: US (occurrence: US)
  Receive Date: 20231205
  Receipt Date: 20231205
  Transmission Date: 20240110
  Serious: Yes (Other)
  Sender: FDA-Public Use
  Company Number: US-HLS-202301614

PATIENT
  Age: 66 Year
  Sex: Male

DRUGS (2)
  1. CLOZAPINE [Suspect]
     Active Substance: CLOZAPINE
     Indication: Product used for unknown indication
     Dosage: 250 TO 125 MG PER DAY;
     Route: 065
  2. HALOPERIDOL [Concomitant]
     Active Substance: HALOPERIDOL
     Indication: Antipsychotic therapy
     Route: 048

REACTIONS (5)
  - Toxicity to various agents [Recovered/Resolved]
  - Orthostatic hypotension [Unknown]
  - Psychotic symptom [Unknown]
  - COVID-19 [Unknown]
  - Parkinsonism [Recovered/Resolved]
